FAERS Safety Report 14986931 (Version 1)
Quarter: 2018Q2

REPORT INFORMATION
  Report Type: Spontaneous
  Country: DE (occurrence: DE)
  Receive Date: 20180608
  Receipt Date: 20180608
  Transmission Date: 20180711
  Serious: Yes (Hospitalization)
  Sender: FDA-Public Use
  Company Number: DE-TEVA-2018-DE-903223

PATIENT
  Age: 80 Year
  Sex: Male
  Weight: 65 kg

DRUGS (10)
  1. BISOPROLOL [Suspect]
     Active Substance: BISOPROLOL
     Route: 048
  2. CHLORALHYDRAT [Suspect]
     Active Substance: CHLORAL HYDRATE
     Route: 048
  3. PANTOPRAZOL [Concomitant]
     Active Substance: PANTOPRAZOLE SODIUM
     Route: 048
  4. MAGNESIUM SULFATE. [Concomitant]
     Active Substance: MAGNESIUM SULFATE
     Route: 048
  5. ACETYLSALICYLSAEURE [Concomitant]
     Active Substance: ASPIRIN
     Route: 048
  6. METAMIZOL [Concomitant]
     Active Substance: METAMIZOLE SODIUM
     Route: 042
  7. BUPROPION. [Suspect]
     Active Substance: BUPROPION
     Route: 048
  8. DONEPEZIL. [Suspect]
     Active Substance: DONEPEZIL
     Route: 048
  9. SULPIRIDE [Suspect]
     Active Substance: SULPIRIDE
     Route: 048
  10. SIMVASTATIN. [Concomitant]
     Active Substance: SIMVASTATIN
     Route: 048

REACTIONS (1)
  - Fall [Unknown]

NARRATIVE: CASE EVENT DATE: 20160114
